FAERS Safety Report 4528754-4 (Version None)
Quarter: 2004Q4

REPORT INFORMATION
  Report Type: 
  Country: None (occurrence: None)
  Receive Date: 20041216
  Receipt Date: 20041022
  Transmission Date: 20050328
  Serious: Yes (Hospitalization)
  Sender: FDA-Public Use
  Company Number: JP-ROCHE-384337

PATIENT
  Age: 22 Year
  Sex: Female

DRUGS (2)
  1. ROCEPHIN [Suspect]
     Indication: TONSILLITIS
     Route: 042
     Dates: start: 20040913, end: 20040913
  2. LOXONIN [Concomitant]
     Indication: PAIN
     Route: 048
     Dates: start: 20040913, end: 20040914

REACTIONS (3)
  - LYMPHOCYTE STIMULATION TEST POSITIVE [None]
  - PULMONARY ALVEOLAR HAEMORRHAGE [None]
  - WHITE BLOOD CELL COUNT INCREASED [None]
